FAERS Safety Report 5280377-8 (Version None)
Quarter: 2007Q1

REPORT INFORMATION
  Report Type: 
  Country: None (occurrence: None)
  Receive Date: 20070329
  Receipt Date: 20070320
  Transmission Date: 20070707
  Serious: Yes (Other)
  Sender: FDA-Public Use
  Company Number: US-ROCHE-486724

PATIENT
  Age: 55 Year
  Sex: Male
  Weight: 83 kg

DRUGS (4)
  1. PEGASYS [Suspect]
     Indication: HEPATITIS C
     Dosage: REPORTED AS 180MCG/0.5ML
     Route: 058
     Dates: start: 20070209
  2. RIBAVIRIN [Suspect]
     Indication: HEPATITIS C
     Dosage: REPORTED AS 2 IN THE MORNING AND 2 IN THE EVENING
     Route: 048
     Dates: start: 20070209
  3. XANAX [Concomitant]
     Indication: SOMNOLENCE
     Dosage: REPORTED AS 1 TABLET TAKEN AT NIGHT
     Route: 048
  4. NORCO [Concomitant]
     Indication: PAIN
     Route: 048

REACTIONS (4)
  - DELIRIUM [None]
  - IRRITABILITY [None]
  - PYREXIA [None]
  - VOMITING [None]
